FAERS Safety Report 8887577 (Version 1)
Quarter: 2012Q4

REPORT INFORMATION
  Report Type: Spontaneous
  Country: US (occurrence: None)
  Receive Date: 20121031
  Receipt Date: 20121031
  Transmission Date: 20130627
  Serious: Yes (Death, Other)
  Sender: FDA-Public Use
  Company Number: GB-024047

PATIENT
  Age: 8 Year
  Sex: Female
  Weight: 22.4 kg

DRUGS (23)
  1. BUSULFAN [Suspect]
     Indication: BONE MARROW FAILURE
     Route: 048
     Dates: start: 20110425, end: 20110428
  2. CYCLOPHOSPHAMIDE [Suspect]
     Indication: BONE MARROW FAILURE
     Route: 042
     Dates: start: 20110429, end: 20110502
  3. MABCAMPATH [Suspect]
     Indication: BONE MARROW TRANSPLANT
     Route: 042
     Dates: start: 20110426, end: 20110428
  4. METHOTREXATE [Suspect]
     Indication: PROPHYLAXIS AGAINST GRAFT VERSUS HOST DISEASE
     Route: 042
     Dates: start: 20110508, end: 20110511
  5. ALLOPURINOL [Concomitant]
  6. AMPHOTERICIN B [Concomitant]
  7. CASPOFUNGIN [Concomitant]
  8. CICLOSPORIN (CICLOSPORIN) [Concomitant]
  9. DAPSONE (DAPSONE) [Concomitant]
  10. DEFIBROTIDE (DEFIBROTIDE) [Concomitant]
  11. FOLINIC ACID (FOLINIC ACID) [Concomitant]
  12. GANCICLOVIR (GANCICLOVIR) [Concomitant]
  13. HYDROCORTISONE (HYDROCORTISONE) [Concomitant]
  14. IMMUNOGLOBULIN (IMMUNOGLOBULIN NORMAL) [Concomitant]
  15. ISONIAZID (ISONIAZID) [Concomitant]
  16. LINEZOLID (LINEZOLID) [Concomitant]
  17. MESNA (MESNA) [Concomitant]
  18. METRONIDAZOLE (METRONIDAZOLE) [Concomitant]
  19. OCTREOTIDE (OCTREOTIDE) [Concomitant]
  20. PARACETAMOL (PARACETAMOL) [Concomitant]
  21. PETHIDINE (PETHIDINE) [Concomitant]
  22. PHENYTOIN (PHENYTOIN) [Concomitant]
  23. THIOTEPA (THIOTEPA) [Concomitant]

REACTIONS (10)
  - Bacterial sepsis [None]
  - Cytomegalovirus infection [None]
  - Liver disorder [None]
  - Idiopathic pneumonia syndrome [None]
  - Mucosal inflammation [None]
  - Pulmonary haemorrhage [None]
  - Respiratory failure [None]
  - Renal impairment [None]
  - Venoocclusive disease [None]
  - Pulmonary hypertension [None]
